FAERS Safety Report 5843471-6 (Version None)
Quarter: 2008Q3

REPORT INFORMATION
  Report Type: 
  Country: None (occurrence: None)
  Receive Date: 20080813
  Receipt Date: 20080804
  Transmission Date: 20090109
  Serious: Yes (Hospitalization, Disabling)
  Sender: FDA-Public Use
  Company Number: JP-ABBOTT-08P-087-0459074-00

PATIENT
  Sex: Male

DRUGS (1)
  1. CEFDINIR [Suspect]
     Indication: CELLULITIS
     Route: 048
     Dates: start: 20080107

REACTIONS (2)
  - NEPHRITIS INTERSTITIAL [None]
  - RENAL FAILURE ACUTE [None]
